FAERS Safety Report 7470388-6 (Version None)
Quarter: 2011Q2

REPORT INFORMATION
  Report Type: 
  Country: None (occurrence: None)
  Receive Date: 20110510
  Receipt Date: 20110429
  Transmission Date: 20111010
  Serious: Yes (Hospitalization)
  Sender: FDA-Public Use
  Company Number: US-JNJFOC-20110502074

PATIENT
  Sex: Male
  Weight: 85.9 kg

DRUGS (3)
  1. ABIRATERONE ACETATE [Suspect]
     Route: 048
  2. ABIRATERONE ACETATE [Suspect]
     Indication: PROSTATE CANCER
     Route: 048
  3. DOCETAXEL [Concomitant]
     Indication: CHEMOTHERAPY
     Route: 065

REACTIONS (1)
  - PYREXIA [None]
